FAERS Safety Report 8949489 (Version 2)
Quarter: 2013Q1

REPORT INFORMATION
  Report Type: Spontaneous
  Country: DK (occurrence: GB)
  Receive Date: 20121206
  Receipt Date: 20130118
  Transmission Date: 20140127
  Serious: Yes (Hospitalization)
  Sender: FDA-Public Use
  Company Number: GB-FRI-1000040847

PATIENT
  Age: 51 Year
  Sex: Male
  Weight: 88 kg

DRUGS (5)
  1. ESCITALOPRAM [Suspect]
     Indication: DEPRESSION
     Dosage: 10 MG
     Route: 048
     Dates: start: 20040413, end: 20121105
  2. ESCITALOPRAM [Suspect]
     Indication: ANXIETY
     Dosage: 10 MG
     Route: 048
     Dates: start: 201211
  3. LYRICA [Suspect]
     Indication: DEPRESSION
     Dosage: 50 MG
     Route: 048
     Dates: start: 20090129, end: 20121105
  4. LYRICA [Suspect]
     Indication: ANXIETY
     Dosage: 50 MG
     Route: 048
     Dates: start: 201211
  5. LORAZEPAM [Concomitant]
     Indication: ANXIETY
     Route: 048

REACTIONS (5)
  - Psychotic disorder [Recovered/Resolved]
  - Depression [Recovered/Resolved]
  - Irritability [Recovered/Resolved]
  - Sleep disorder [Recovered/Resolved]
  - Withdrawal syndrome [Recovered/Resolved]
